FAERS Safety Report 9521172 (Version 3)
Quarter: 2013Q4

REPORT INFORMATION
  Report Type: Spontaneous
  Country: FR (occurrence: FR)
  Receive Date: 20130913
  Receipt Date: 20131028
  Transmission Date: 20140711
  Serious: Yes (Hospitalization, Other)
  Sender: FDA-Public Use
  Company Number: FR-MERCK-1309FRA002229

PATIENT
  Age: 41 Year
  Sex: Female

DRUGS (54)
  1. CANCIDAS [Suspect]
     Dosage: UNK
     Route: 042
     Dates: start: 20130709, end: 20130709
  2. FORTUM [Suspect]
     Dosage: 1 DF, QID
     Dates: start: 20130621, end: 20130809
  3. FLAGYL [Suspect]
     Dosage: 1 DF, TID
     Route: 048
     Dates: start: 20130712, end: 20130812
  4. GENTAMICIN [Suspect]
     Dosage: 210 MG, QD
     Route: 042
     Dates: start: 20130809, end: 20130811
  5. NOXAFIL [Suspect]
     Dosage: 200 MG, TID
     Route: 048
     Dates: start: 20130619, end: 20130708
  6. AMBISOME [Suspect]
     Dosage: 180 MG, QD
     Route: 042
     Dates: start: 20130709, end: 20130811
  7. BACTRIM [Suspect]
     Dosage: 2 DF, TIW
     Route: 042
     Dates: start: 20130724, end: 20130809
  8. FOLIC ACID [Suspect]
     Dosage: 50 MG, TIW
     Route: 042
     Dates: start: 20130724, end: 20130809
  9. ZELITREX [Suspect]
     Dosage: 500 MG, BID
     Route: 042
     Dates: start: 20130709, end: 20130812
  10. CYMEVAN IV [Suspect]
     Dosage: 350 MG, BID
     Route: 042
     Dates: start: 20130726, end: 20130812
  11. FOSCAVIR [Suspect]
     Dosage: 1 DF, BID
     Route: 042
     Dates: start: 20130808
  12. CLAIRYG [Suspect]
     Dosage: UNK
     Route: 042
  13. GRANOCYTE [Suspect]
     Dosage: UNK
     Route: 042
     Dates: start: 20130807
  14. HEPARIN SODIUM [Suspect]
     Dosage: 7000 IU, QD
     Route: 042
     Dates: start: 20130605
  15. INEXIUM [Suspect]
     Dosage: 1 DF, QD
     Route: 042
     Dates: start: 20130709, end: 20130812
  16. SPASFON [Suspect]
     Dosage: 2 DF, TID
     Route: 042
     Dates: start: 20130619
  17. DELURSAN [Suspect]
     Dosage: 3 DF, BID
     Route: 048
     Dates: start: 20130605, end: 20130708
  18. DEFIBROTIDE [Suspect]
     Dosage: 25 MG/KG, QD
     Route: 042
     Dates: start: 20130605, end: 20130812
  19. LARGACTIL [Suspect]
     Dosage: 1 DF, QD
     Route: 042
     Dates: start: 20130619, end: 20130709
  20. TRANXENE [Suspect]
     Dosage: 4 DF, PRN
     Route: 048
     Dates: start: 20130622, end: 20130709
  21. OXYNORM [Suspect]
     Dosage: UNK
     Route: 042
     Dates: start: 20130619
  22. EXACYL [Suspect]
     Dosage: 1 DF, TID
     Route: 042
     Dates: start: 20130727, end: 20130812
  23. PERFALGAN [Suspect]
     Dosage: 1 G, TID
     Route: 042
     Dates: start: 20130710, end: 20130812
  24. SOLU-MEDROL [Suspect]
     Dosage: 140 MG, QD
     Route: 042
     Dates: start: 20130709
  25. DROLEPTAN [Suspect]
     Dosage: 0.625 MG, QID
     Route: 042
     Dates: start: 20130712, end: 20130717
  26. ULTIVA [Suspect]
     Dosage: 100 GBQ, QH
     Route: 042
     Dates: start: 20130714, end: 20130717
  27. ATARAX (ALPRAZOLAM) [Suspect]
     Dosage: 0.5 DF, QD
     Route: 048
     Dates: start: 20130714
  28. LASILIX [Suspect]
     Dosage: 40 MG, BID
     Route: 042
     Dates: start: 20130716, end: 20130809
  29. SEROPLEX [Suspect]
     Dosage: 10 MG, QD
     Route: 048
     Dates: start: 20130721
  30. CERIS [Suspect]
     Dosage: 2 DF, QD
     Route: 048
     Dates: start: 20130807
  31. NOCTAMIDE [Suspect]
     Dosage: 1 DF, QD
     Route: 048
     Dates: start: 20130808
  32. GENTAMICIN [Concomitant]
     Dosage: 2 DF, TID
     Dates: start: 20130605, end: 20130708
  33. COLISTIN [Concomitant]
     Dosage: 2 DF, TID
     Dates: start: 20130605, end: 20130708
  34. VANCOMYCIN MYLAN [Concomitant]
     Dosage: 1 G, QD
     Dates: start: 20130605, end: 20130709
  35. CIFLOX (CIPROFLOXACIN HYDROCHLORIDE) [Concomitant]
     Dosage: 400 MG, BID
     Dates: start: 20130621, end: 20130712
  36. TARGOCID [Concomitant]
     Dosage: 400 MG, BID
     Dates: start: 20130710
  37. MYCOSTATINE [Concomitant]
     Dosage: 2 DF, QD
     Dates: start: 20130605, end: 20130619
  38. TRIFLUCAN [Concomitant]
     Dosage: 200 MG, QD
     Dates: start: 20130605, end: 20130618
  39. ZOVIRAX [Concomitant]
     Dosage: 250 MG, TID
     Dates: start: 20130605, end: 20130709
  40. METHOTREXATE [Concomitant]
     Dosage: 18 MG, QD
     Dates: start: 20130605, end: 20130619
  41. ELVORINE [Concomitant]
     Dosage: 18.4 MG, QD
     Dates: start: 20130605, end: 20130619
  42. SANDIMMUN [Concomitant]
     Dosage: 210 MG, QD
     Dates: start: 20130614, end: 20130708
  43. MOPRAL (OMEPRAZOLE SODIUM) [Concomitant]
     Dosage: 20 MG, QD
     Dates: start: 20130605, end: 20130618
  44. OGASTORO [Concomitant]
     Dosage: 30 MG, QD
     Dates: start: 20130619, end: 20130708
  45. GELOX (ALUMINUM HYDROXIDE) [Concomitant]
     Dosage: 1 DF, TID
     Dates: start: 20130605, end: 20130708
  46. SMECTA [Concomitant]
     Dosage: 6 DF, QD
     Dates: start: 20130620, end: 20130708
  47. LUTERAN [Concomitant]
     Dosage: 1 DF, QD
     Dates: start: 20130605, end: 20130708
  48. LEXOMIL [Concomitant]
     Dosage: 0.5 DF, QD
     Dates: start: 20130605, end: 20130708
  49. NOCTAMIDE [Concomitant]
     Dosage: 1 DF, QD
     Dates: start: 20130605, end: 20130708
  50. ZOPHREN (ONDANSETRON) [Concomitant]
     Dosage: 2 DF, QD
     Dates: start: 20130605, end: 20130708
  51. PRIMPERAN [Concomitant]
     Dosage: 6 DF, QD
     Dates: start: 20130620, end: 20130709
  52. ACUPAN [Concomitant]
     Dosage: 6 DF, PRN
     Dates: start: 20130620, end: 20130709
  53. TIORFAN [Concomitant]
     Dosage: UNK
     Dates: start: 20130622, end: 20130708
  54. LEVOCARNIL [Concomitant]
     Dosage: 1 G, TID
     Dates: start: 20130709, end: 20130714

REACTIONS (1)
  - Toxic epidermal necrolysis [Not Recovered/Not Resolved]
